FAERS Safety Report 7628709-7 (Version None)
Quarter: 2011Q3

REPORT INFORMATION
  Report Type: 
  Country: None (occurrence: None)
  Receive Date: 20110722
  Receipt Date: 20110712
  Transmission Date: 20111222
  Serious: Yes (Disabling)
  Sender: FDA-Public Use
  Company Number: IT-ALLERGAN-1109389US

PATIENT
  Age: 79 Year
  Sex: Female

DRUGS (1)
  1. OZURDEX [Suspect]
     Indication: MACULAR OEDEMA
     Dosage: UNK
     Route: 031
     Dates: start: 20110614, end: 20110614

REACTIONS (5)
  - CORNEAL OEDEMA [None]
  - RETINAL DISORDER [None]
  - CORNEAL DISORDER [None]
  - DEVICE DISLOCATION [None]
  - VISUAL IMPAIRMENT [None]
